FAERS Safety Report 16919576 (Version 1)
Quarter: 2019Q4

REPORT INFORMATION
  Report Type: Spontaneous
  Country: GB (occurrence: GB)
  Receive Date: 20191015
  Receipt Date: 20191015
  Transmission Date: 20200122
  Serious: Yes (Other)
  Sender: FDA-Public Use
  Company Number: GB-MYLANLABS-2019M1096190

PATIENT
  Age: 79 Year
  Sex: Male
  Weight: 75 kg

DRUGS (36)
  1. CODEINE PHOSPHATE [Concomitant]
     Active Substance: CODEINE PHOSPHATE
     Dosage: ONE OR TWO TO BE TAKEN AS REQUIRED
     Dates: start: 20000719, end: 20190625
  2. NITROFURANTOIN. [Concomitant]
     Active Substance: NITROFURANTOIN
     Dosage: 2 DOSAGE FORM, QD
     Dates: start: 20190625
  3. CO-PROXAMOL [Concomitant]
     Active Substance: ACETAMINOPHEN\PROPOXYPHENE HYDROCHLORIDE
     Dosage: UNK (AS DIRECTED)
     Dates: start: 20020816, end: 20190625
  4. GABAPENTIN. [Concomitant]
     Active Substance: GABAPENTIN
     Dosage: UNK (AS DIRECTED)
     Dates: start: 20071231, end: 20190625
  5. FLUCLOXACILLIN [Concomitant]
     Active Substance: FLUCLOXACILLIN
     Dosage: 4 DOSAGE FORM, QD
     Dates: start: 20190502, end: 20190531
  6. AMLODIPINE [Concomitant]
     Active Substance: AMLODIPINE BESYLATE
     Dosage: 1 DOSAGE FORM, QD
     Dates: start: 20050524, end: 20190625
  7. TRIMETHOPRIM. [Concomitant]
     Active Substance: TRIMETHOPRIM
     Dosage: 2 DOSAGE FORM, QD
     Dates: start: 20190531, end: 20190601
  8. DEPO-MEDRONE [Concomitant]
     Active Substance: METHYLPREDNISOLONE
     Dosage: UNK (STAT)
     Dates: start: 20070424, end: 20190625
  9. FOLIC ACID. [Concomitant]
     Active Substance: FOLIC ACID
     Dosage: 1 DOSAGE FORM, QD
     Dates: start: 20160814
  10. IRBESARTAN. [Concomitant]
     Active Substance: IRBESARTAN
     Dosage: 1 DOSAGE FORM, QD
     Dates: start: 20060728, end: 20190625
  11. IBUPROFEN. [Concomitant]
     Active Substance: IBUPROFEN
     Dosage: UNK (APPLY UP TO THREE TIMES A DAY)
     Dates: start: 20190405, end: 20190518
  12. CHLORAMPHENICOL [Concomitant]
     Active Substance: CHLORAMPHENICOL
     Dosage: 1 GTT DROPS, Q2H (IN THE AFFECTED EYE(S))
     Dates: start: 20190625
  13. LOFEPRAMINE [Concomitant]
     Active Substance: LOFEPRAMINE
     Dosage: 2 DOSAGE FORM, QD
     Dates: start: 20000704, end: 20190625
  14. DOXAZOSIN [Concomitant]
     Active Substance: DOXAZOSIN MESYLATE
     Dosage: 1 DOSAGE FORM, QD (IN THE MORNING)
     Dates: start: 20010606
  15. ATENOLOL. [Concomitant]
     Active Substance: ATENOLOL
     Dosage: 1 DOSAGE FORM, QD (IN THE MORNING)
     Dates: start: 20000517
  16. ACIDEX                             /01521901/ [Concomitant]
     Active Substance: CALCIUM CARBONATE\SODIUM ALGINATE\SODIUM BICARBONATE
     Dosage: 10 ML AFTER FOOD AND AT NIGHT AS REQUIRED
     Dates: start: 20050531, end: 20190625
  17. METFORMIN [Concomitant]
     Active Substance: METFORMIN HYDROCHLORIDE
     Dosage: 6 DOSAGE FORM, QD
     Dates: start: 20010910, end: 20190625
  18. DOSULEPIN HYDROCHLORIDE [Concomitant]
     Active Substance: DOTHIEPIN HYDROCHLORIDE
     Dosage: 1 DOSAGE FORM, QD (AT NIGHT)
     Dates: start: 19900525, end: 20190625
  19. MORPHINE SULFATE. [Concomitant]
     Active Substance: MORPHINE SULFATE
     Indication: PAIN
     Dosage: 5 MILLILITER, PRN (5MLS PRN FOR PAIN MAX 2 HOURLY)
     Dates: start: 20160331, end: 20190625
  20. LACIDIPINE [Concomitant]
     Active Substance: LACIDIPINE
     Dosage: 1 DOSAGE FORM, QD
     Dates: start: 20050803, end: 20190625
  21. AMITRIPTYLINE HYDROCHLORIDE. [Concomitant]
     Active Substance: AMITRIPTYLINE HYDROCHLORIDE
     Dosage: 1 DOSAGE FORM, QD (AT NIGHT)
     Dates: start: 20040318, end: 20190625
  22. DICLOFENAC DIETHYLAMINE [Concomitant]
     Active Substance: DICLOFENAC DIETHYLAMINE
     Dosage: UNK (APPLY THREE OR FOUR TIMES A DAY)
     Dates: start: 20190501, end: 20190613
  23. NISOLDIPINE. [Concomitant]
     Active Substance: NISOLDIPINE
     Dosage: 1 DOSAGE FORM, QD (IN THE MORNING)
     Dates: start: 19970807, end: 20190625
  24. RAMIPRIL. [Suspect]
     Active Substance: RAMIPRIL
     Indication: PRODUCT USED FOR UNKNOWN INDICATION
     Dosage: 2.5 MILLIGRAM, QD
     Dates: start: 20000316
  25. DOCUSATE SODIUM. [Concomitant]
     Active Substance: DOCUSATE SODIUM
     Dosage: UP TO TWO TWICE DAILY)
     Dates: start: 20171222, end: 20190625
  26. BEZALIP [Concomitant]
     Active Substance: BEZAFIBRATE
     Dosage: 1 DOSAGE FORM, QD (AT NIGHT)
     Dates: start: 19940221, end: 20190625
  27. DIHYDROCODEINE [Concomitant]
     Active Substance: DIHYDROCODEINE
     Dosage: 4 DOSAGE FORM, QD
     Dates: start: 20020213, end: 20190625
  28. RANITIDINE. [Concomitant]
     Active Substance: RANITIDINE
     Dosage: 2 DOSAGE FORM, QD
     Dates: start: 19900326
  29. FULTIUM D3 [Concomitant]
     Active Substance: CHOLECALCIFEROL
     Dosage: 2 DOSAGE FORM, QD
     Dates: start: 20160208
  30. ATORVASTATIN [Concomitant]
     Active Substance: ATORVASTATIN
     Dosage: 1 DOSAGE FORM, QD (IN THE MORNING)
     Dates: start: 20000614
  31. TRAMADOL. [Concomitant]
     Active Substance: TRAMADOL
     Dosage: UNK UNK, PRN
     Dates: start: 20020109, end: 20190625
  32. RIVASTIGMINE. [Concomitant]
     Active Substance: RIVASTIGMINE
     Dosage: 1 DOSAGE FORM, QD
     Route: 062
     Dates: start: 20171204
  33. RISPERIDONE. [Concomitant]
     Active Substance: RISPERIDONE
     Dosage: ONE TABLET EACH DAY AND ONE ADDITONAL TABLET WH...
     Dates: start: 20180717
  34. PARACETAMOL [Concomitant]
     Active Substance: ACETAMINOPHEN
     Dosage: UNK (AS DIRECTED)
     Dates: start: 20000719, end: 20190625
  35. BENDROFLUMETHIAZIDE [Concomitant]
     Active Substance: BENDROFLUMETHIAZIDE
     Dosage: 1 DOSAGE FORM, QD (IN THE MORNING)
     Dates: start: 20031114, end: 20190625
  36. CANDESARTAN. [Concomitant]
     Active Substance: CANDESARTAN
     Dosage: 1 DOSAGE FORM, QD
     Dates: start: 20060928, end: 20190625

REACTIONS (1)
  - Drug intolerance [Unknown]

NARRATIVE: CASE EVENT DATE: 20190627
